FAERS Safety Report 20709952 (Version 1)
Quarter: 2022Q2

REPORT INFORMATION
  Report Type: Spontaneous
  Country: GB (occurrence: GB)
  Receive Date: 20220414
  Receipt Date: 20220414
  Transmission Date: 20220720
  Serious: Yes (Hospitalization)
  Sender: FDA-Public Use
  Company Number: GB-VERTEX PHARMACEUTICALS-2022-005752

PATIENT
  Sex: Female

DRUGS (4)
  1. ELEXACAFTOR\IVACAFTOR\TEZACAFTOR [Suspect]
     Active Substance: ELEXACAFTOR\IVACAFTOR\TEZACAFTOR
     Indication: Cystic fibrosis
     Dosage: 75 MG IVA/50 MG TEZA/100 MG ELEXA; 2 TABS IN AM
     Route: 048
     Dates: start: 2020
  2. ELEXACAFTOR\IVACAFTOR\TEZACAFTOR [Suspect]
     Active Substance: ELEXACAFTOR\IVACAFTOR\TEZACAFTOR
     Dosage: HALF AM AND HALF PM
     Route: 048
  3. KALYDECO [Suspect]
     Active Substance: IVACAFTOR
     Indication: Cystic fibrosis
     Dosage: ONE TAB IN PM
     Route: 048
     Dates: start: 2020
  4. KALYDECO [Suspect]
     Active Substance: IVACAFTOR
     Dosage: HALF AM AND HALF PM
     Route: 048

REACTIONS (3)
  - Injury associated with device [Unknown]
  - Malaise [Unknown]
  - Chest discomfort [Not Recovered/Not Resolved]
